FAERS Safety Report 4625449-3 (Version None)
Quarter: 2005Q2

REPORT INFORMATION
  Report Type: 
  Country: None (occurrence: None)
  Receive Date: 20050401
  Receipt Date: 20050322
  Transmission Date: 20051028
  Serious: Yes (Other)
  Sender: FDA-Public Use
  Company Number: ES-BOEHRINGER INGELHEIM PHARMACEUTICALS, INC.-2005-DE-01192GD

PATIENT
  Age: 55 Year
  Sex: Female

DRUGS (2)
  1. ACETYLSALICYLIC ACID SRT [Suspect]
     Route: 048
  2. DICLOFENAC SODIUM [Suspect]
     Route: 048

REACTIONS (2)
  - HYPOTENSION [None]
  - URTICARIA GENERALISED [None]
